FAERS Safety Report 23230192 (Version 1)
Quarter: 2023Q4

REPORT INFORMATION
  Report Type: Spontaneous
  Country: US (occurrence: None)
  Receive Date: 20231124
  Receipt Date: 20231124
  Transmission Date: 20240110
  Serious: Yes (Other)
  Sender: FDA-Public Use
  Company Number: None

PATIENT
  Age: 80 Year
  Sex: Male

DRUGS (1)
  1. LENALIDOMIDE [Suspect]
     Active Substance: LENALIDOMIDE
     Indication: Plasma cell myeloma
     Dosage: 15MG QD ORAL?? THERAPY DATES:  - DOSE REDUCED?
     Route: 048
     Dates: start: 20230915

REACTIONS (2)
  - Dizziness [None]
  - Therapy change [None]

NARRATIVE: CASE EVENT DATE: 20231124
